FAERS Safety Report 8533989-X (Version None)
Quarter: 2012Q3

REPORT INFORMATION
  Report Type: 
  Country: None (occurrence: None)
  Receive Date: 20120724
  Receipt Date: 20120711
  Transmission Date: 20120928
  Serious: No
  Sender: FDA-Public Use
  Company Number: US-ASTRAZENECA-2012SE40996

PATIENT
  Age: 50 Year
  Sex: Female
  Weight: 61.2 kg

DRUGS (21)
  1. VALIUM [Concomitant]
     Indication: BIPOLAR I DISORDER
  2. NEXIUM [Suspect]
     Route: 048
  3. XANAX [Concomitant]
     Indication: BIPOLAR I DISORDER
  4. NAPROXEN [Concomitant]
     Indication: ARTHRITIS
     Dosage: PRN
  5. CHLORD CLIDI [Concomitant]
     Route: 048
  6. VALIUM [Concomitant]
     Indication: ANXIETY
  7. PRILOSEC [Suspect]
     Indication: GASTROOESOPHAGEAL REFLUX DISEASE
     Route: 048
  8. XANAX [Concomitant]
     Indication: PANIC ATTACK
  9. PRILOSEC [Suspect]
     Route: 048
  10. PRILOSEC OTC [Suspect]
     Route: 048
     Dates: start: 20111117
  11. CHLORD CLIDI [Concomitant]
     Indication: IRRITABLE BOWEL SYNDROME
     Route: 048
  12. VALIUM [Concomitant]
     Indication: PANIC ATTACK
  13. ABILIFY [Concomitant]
     Indication: ANXIETY
  14. ABILIFY [Concomitant]
     Indication: PANIC ATTACK
  15. ABILIFY [Concomitant]
     Indication: BIPOLAR I DISORDER
  16. NEXIUM [Suspect]
     Indication: GASTROOESOPHAGEAL REFLUX DISEASE
     Route: 048
  17. OTHER [Concomitant]
     Dosage: 3 TIMES A DAY
  18. NEXIUM [Suspect]
     Route: 048
  19. NEXIUM [Suspect]
     Route: 048
  20. XANAX [Concomitant]
     Indication: ANXIETY
  21. PEPCID [Concomitant]

REACTIONS (19)
  - BLISTER [None]
  - GASTROOESOPHAGEAL REFLUX DISEASE [None]
  - PAIN [None]
  - HOUSE DUST ALLERGY [None]
  - PRURITUS [None]
  - DYSPHAGIA [None]
  - ARTHRITIS [None]
  - PARANASAL SINUS HYPERSECRETION [None]
  - ABDOMINAL DISTENSION [None]
  - BIPOLAR I DISORDER [None]
  - DRUG DOSE OMISSION [None]
  - ANXIETY [None]
  - PANIC ATTACK [None]
  - ECCHYMOSIS [None]
  - DRUG INEFFECTIVE [None]
  - CHEST PAIN [None]
  - SEASONAL ALLERGY [None]
  - IRRITABLE BOWEL SYNDROME [None]
  - DRUG HYPERSENSITIVITY [None]
